FAERS Safety Report 18329333 (Version 1)
Quarter: 2020Q3

REPORT INFORMATION
  Report Type: Spontaneous
  Country: US (occurrence: US)
  Receive Date: 20200927
  Receipt Date: 20200927
  Transmission Date: 20201103
  Serious: Yes (Death)
  Sender: FDA-Public Use
  Company Number: None

PATIENT
  Age: 8 Decade
  Sex: Male

DRUGS (7)
  1. COLIMYCIN [Concomitant]
     Active Substance: COLISTIMETHATE SODIUM
  2. ISAVUCONAZOLE [Concomitant]
     Active Substance: ISAVUCONAZOLE
  3. MEROPENEM. [Concomitant]
     Active Substance: MEROPENEM
  4. TIGECYCLINE. [Concomitant]
     Active Substance: TIGECYCLINE
  5. REMDESIVIR. [Suspect]
     Active Substance: REMDESIVIR
     Indication: COVID-19
  6. LEVOFLOXACIN. [Concomitant]
     Active Substance: LEVOFLOXACIN
  7. VORICONAZOLE. [Concomitant]
     Active Substance: VORICONAZOLE

REACTIONS (7)
  - Lung disorder [None]
  - Pulmonary mass [None]
  - Multiple organ dysfunction syndrome [None]
  - Pleural effusion [None]
  - Lung opacity [None]
  - Sepsis [None]
  - Intentional product use issue [None]
